FAERS Safety Report 15735045 (Version 1)
Quarter: 2018Q4

REPORT INFORMATION
  Report Type: Spontaneous
  Country: DE (occurrence: DE)
  Receive Date: 20181218
  Receipt Date: 20181218
  Transmission Date: 20190205
  Serious: Yes (Hospitalization, Other)
  Sender: FDA-Public Use
  Company Number: DE-MYLANLABS-2018M1093852

PATIENT
  Age: 80 Year
  Sex: Female

DRUGS (14)
  1. ENALAPRIL [Concomitant]
     Active Substance: ENALAPRIL
     Dosage: 20 MILLIGRAM, QD
     Route: 048
     Dates: end: 20180220
  2. PREDNIFLUID [Concomitant]
     Dosage: 2 GTT
     Route: 047
     Dates: end: 20180221
  3. BRIMONIDINE [Concomitant]
     Active Substance: BRIMONIDINE TARTRATE
     Dosage: 2 GTT
     Route: 047
     Dates: end: 20180221
  4. ACTRAPID [Concomitant]
     Active Substance: INSULIN HUMAN
     Indication: DIABETES MELLITUS
     Dosage: UNK UNK, QD
     Route: 058
     Dates: end: 20180221
  5. ELIQUIS [Concomitant]
     Active Substance: APIXABAN
     Dosage: 10 MILLIGRAM, QD
     Route: 048
     Dates: end: 20180221
  6. RISPERIDONE. [Suspect]
     Active Substance: RISPERIDONE
     Indication: PRODUCT USED FOR UNKNOWN INDICATION
     Dosage: 0 TO 2.5 MG
     Route: 048
     Dates: start: 20161201, end: 20180212
  7. RISPERIDONE. [Interacting]
     Active Substance: RISPERIDONE
     Dosage: 1 MILLIGRAM, QD
     Route: 048
     Dates: start: 20180213, end: 20180221
  8. RISPERIDONE. [Interacting]
     Active Substance: RISPERIDONE
     Dosage: 0.5 MILLIGRAM, QD
     Route: 048
     Dates: start: 20180222
  9. MIRTAZAPIN [Concomitant]
     Active Substance: MIRTAZAPINE
     Dosage: 30 MILLIGRAM, QD
     Route: 048
     Dates: start: 20180213, end: 20180221
  10. DORZOCOMP VISION [Concomitant]
     Active Substance: DORZOLAMIDE HYDROCHLORIDE\TIMOLOL MALEATE
     Dosage: 2 X 1 GTT
     Route: 047
     Dates: end: 20180221
  11. SIMVASTATIN. [Concomitant]
     Active Substance: SIMVASTATIN
     Dosage: 20 MILLIGRAM, QD
     Route: 048
     Dates: end: 20180221
  12. PIPAMPERON [Interacting]
     Active Substance: PIPAMPERONE HYDROCHLORIDE
     Indication: PRODUCT USED FOR UNKNOWN INDICATION
     Dosage: 60 MILLIGRAM, QD
     Route: 048
     Dates: start: 20180213, end: 20180221
  13. LANTUS [Concomitant]
     Active Substance: INSULIN GLARGINE
     Indication: DIABETES MELLITUS
     Dosage: 20 INTERNATIONAL UNIT, QD
     Route: 058
     Dates: end: 20180221
  14. ENALAPRIL [Concomitant]
     Active Substance: ENALAPRIL
     Dosage: 15 MILLIGRAM, QD
     Route: 048
     Dates: start: 20180221, end: 20180221

REACTIONS (2)
  - Rabbit syndrome [Recovering/Resolving]
  - Drug interaction [Recovering/Resolving]

NARRATIVE: CASE EVENT DATE: 20180221
